FAERS Safety Report 4654738-1 (Version None)
Quarter: 2005Q2

REPORT INFORMATION
  Report Type: 
  Country: None (occurrence: None)
  Receive Date: 20050506
  Receipt Date: 20050427
  Transmission Date: 20051028
  Serious: Yes (Death)
  Sender: FDA-Public Use
  Company Number: US-JNJFOC-20050400593

PATIENT
  Sex: Female
  Weight: 72.58 kg

DRUGS (8)
  1. REMICADE [Suspect]
     Route: 042
  2. REMICADE [Suspect]
     Indication: RHEUMATOID ARTHRITIS
     Route: 042
  3. IMURAN [Concomitant]
     Indication: RHEUMATOID ARTHRITIS
  4. PERCOCET [Concomitant]
  5. PERCOCET [Concomitant]
     Indication: PAIN
     Dosage: 5/325; UP TO 4 TIMES DAILY
  6. AZULFIDINE [Concomitant]
  7. BEXTRA [Concomitant]
  8. GLUCOSAMINE [Concomitant]

REACTIONS (10)
  - ABASIA [None]
  - ANOREXIA [None]
  - ARTHRALGIA [None]
  - DEATH [None]
  - DRUG INEFFECTIVE [None]
  - DRY SKIN [None]
  - DYSTHYMIC DISORDER [None]
  - IRRITABILITY [None]
  - JOINT SWELLING [None]
  - SKIN WARM [None]
